FAERS Safety Report 5513394-0 (Version None)
Quarter: 2007Q4

REPORT INFORMATION
  Report Type: 
  Country: None (occurrence: None)
  Receive Date: 20071112
  Receipt Date: 20071031
  Transmission Date: 20080405
  Serious: Yes (Hospitalization)
  Sender: FDA-Public Use
  Company Number: FR-PFIZER INC-2007046344

PATIENT
  Sex: Male
  Weight: 61 kg

DRUGS (10)
  1. LINEZOLID [Suspect]
     Indication: SKIN INFECTION
     Route: 048
     Dates: start: 20070529, end: 20070608
  2. LINEZOLID [Suspect]
     Indication: PNEUMONIA
  3. HEPARIN CALCIUM [Concomitant]
     Route: 058
     Dates: start: 20070425, end: 20070602
  4. FOSFOMYCIN SODIUM [Concomitant]
  5. VANCOMYCIN [Concomitant]
  6. TEICOPLANIN [Concomitant]
     Route: 042
     Dates: start: 20070428, end: 20070515
  7. OFLOXACIN [Concomitant]
     Route: 042
     Dates: start: 20070425, end: 20070428
  8. ROCEPHIN [Concomitant]
     Route: 042
     Dates: start: 20070425, end: 20070428
  9. TRIFLUCAN [Concomitant]
     Route: 042
     Dates: start: 20070429, end: 20070515
  10. GENTAMICIN [Concomitant]
     Route: 042
     Dates: start: 20070428, end: 20070503

REACTIONS (7)
  - ANAEMIA [None]
  - BLOOD ALKALINE PHOSPHATASE INCREASED [None]
  - GAMMA-GLUTAMYLTRANSFERASE INCREASED [None]
  - HEPATIC FUNCTION ABNORMAL [None]
  - LIPASE INCREASED [None]
  - RENAL FAILURE [None]
  - THROMBOCYTOPENIA [None]
